FAERS Safety Report 6529184-6 (Version None)
Quarter: 2009Q4

REPORT INFORMATION
  Report Type: 
  Country: None (occurrence: None)
  Receive Date: 20091231
  Receipt Date: 20091216
  Transmission Date: 20100525
  Serious: Yes (Hospitalization)
  Sender: FDA-Public Use
  Company Number: 2009AL007922

PATIENT
  Age: 57 Year
  Sex: Female

DRUGS (2)
  1. VENLAFAXINE HYDROCHLORIDE TABLETS, 100MG (ATLLC) [Suspect]
     Indication: DEPRESSION
     Dosage: 300 MG; PO
     Route: 048
     Dates: start: 20080101, end: 20091001
  2. CLOZARIL [Concomitant]

REACTIONS (4)
  - CONSTIPATION [None]
  - DYSURIA [None]
  - FATIGUE [None]
  - ORTHOSTATIC HYPOTENSION [None]
